FAERS Safety Report 7467124-6 (Version None)
Quarter: 2011Q2

REPORT INFORMATION
  Report Type: 
  Country: None (occurrence: None)
  Receive Date: 20110509
  Receipt Date: 20101108
  Transmission Date: 20111010
  Serious: No
  Sender: FDA-Public Use
  Company Number: US-ALEXION-A201001437

PATIENT
  Sex: Male

DRUGS (2)
  1. SOLIRIS [Suspect]
     Indication: PAROXYSMAL NOCTURNAL HAEMOGLOBINURIA
     Dosage: UNK
     Route: 042
     Dates: start: 20070701
  2. LOVENOX [Suspect]

REACTIONS (11)
  - ILL-DEFINED DISORDER [None]
  - BLOOD LACTATE DEHYDROGENASE INCREASED [None]
  - MALAISE [None]
  - FALL [None]
  - POLLAKIURIA [None]
  - ORAL HERPES [None]
  - NAUSEA [None]
  - PRURITUS [None]
  - HAEMOGLOBINURIA [None]
  - HAEMORRHAGE [None]
  - URINE OUTPUT DECREASED [None]
